FAERS Safety Report 8117845 (Version 2)
Quarter: 2012Q4

REPORT INFORMATION
  Report Type: 
  Country: US (occurrence: US)
  Receive Date: 20110901
  Receipt Date: 20120926
  Transmission Date: 20130627
  Serious: Yes (Other)
  Sender: FDA-Public Use
  Company Number: US-US-EMD SERONO, INC.-7079079

PATIENT
  Age: 52 None
  Sex: Female

DRUGS (4)
  1. REBIF [Suspect]
     Indication: MULTIPLE SCLEROSIS
     Dates: start: 200702, end: 200711
  2. REBIF [Suspect]
     Route: 058
     Dates: start: 20100201
  3. DETROL [Concomitant]
     Indication: BLADDER DISORDER
  4. PREMARIN [Concomitant]
     Indication: HORMONE THERAPY

REACTIONS (5)
  - Optic neuritis [Recovered/Resolved]
  - Multiple sclerosis relapse [Unknown]
  - Hepatic enzyme increased [Recovered/Resolved]
  - Injection site pain [Not Recovered/Not Resolved]
  - Injection site erythema [Unknown]
